FAERS Safety Report 19168780 (Version 8)
Quarter: 2021Q3

REPORT INFORMATION
  Report Type: Report from Study
  Country: CN (occurrence: CN)
  Receive Date: 20210422
  Receipt Date: 20210723
  Transmission Date: 20211014
  Serious: Yes (Hospitalization)
  Sender: FDA-Public Use
  Company Number: CN-ROCHE-2765586

PATIENT
  Age: 54 Year
  Sex: Male
  Weight: 77 kg

DRUGS (23)
  1. BENAZEPRIL HYDROCHLORIDE. [Concomitant]
     Active Substance: BENAZEPRIL HYDROCHLORIDE
     Indication: HYPERTENSION
     Dates: start: 20200419, end: 20210419
  2. AMLODIPINE BESILATE [Concomitant]
     Active Substance: AMLODIPINE BESYLATE
     Indication: HYPERTENSION
     Dates: start: 20190829, end: 20191106
  3. AMLODIPINE BESILATE [Concomitant]
     Active Substance: AMLODIPINE BESYLATE
     Dates: start: 20200207, end: 20210121
  4. HYDROCHLOROTHIAZIDE. [Concomitant]
     Active Substance: HYDROCHLOROTHIAZIDE
     Indication: HYPERTENSION
     Dates: start: 20200207, end: 20210207
  5. GLYCYRRHIZIC ACID, AMMONIUM SALT [Concomitant]
     Active Substance: AMMONIUM GLYCYRRHIZATE
     Dates: start: 20210415, end: 20210415
  6. COMPOUND GLYCYRRHIZIN INJECTION [Concomitant]
     Active Substance: CYSTEINE\GLYCINE\GLYCYRRHIZIN
     Dates: start: 20210416, end: 20210429
  7. HUMAN SERUM ALBUMIN [Concomitant]
     Active Substance: ALBUMIN HUMAN
     Dates: start: 20210419, end: 20210419
  8. UREA. [Concomitant]
     Active Substance: UREA
     Dates: start: 20210420
  9. METOPROLOL TARTRATE. [Concomitant]
     Active Substance: METOPROLOL TARTRATE
     Indication: HYPERTENSION
     Dates: start: 20190627, end: 20210207
  10. LEUCOGEN TABLETS [Concomitant]
     Indication: PLATELET COUNT INCREASED
     Dates: start: 20200512, end: 20200706
  11. VALSARTAN. [Concomitant]
     Active Substance: VALSARTAN
     Indication: HYPERTENSION
     Dates: start: 20200207, end: 20200418
  12. GLYCYRRHIZIC ACID, AMMONIUM SALT [Concomitant]
     Active Substance: AMMONIUM GLYCYRRHIZATE
     Dates: start: 20190827, end: 20200108
  13. BEVACIZUMAB. [Suspect]
     Active Substance: BEVACIZUMAB
     Indication: HEPATOCELLULAR CARCINOMA
     Dosage: IV, 15 MG/KG ON DAY 1 OF EACH 21 DAY CYCLE?DATE OF MOST RECENT DOSE OF BEVACIZUMAB (1162.5 MG) PRIOR
     Route: 042
     Dates: start: 20181017
  14. VALSARTAN AND HYDROCHLOROTHIAZIDE [Concomitant]
     Active Substance: HYDROCHLOROTHIAZIDE\VALSARTAN
     Indication: HYPERTENSION
     Dates: start: 20191106, end: 20200207
  15. CALCIUM CARBONATE WITH D3 [Concomitant]
     Active Substance: CALCIUM CARBONATE\CHOLECALCIFEROL
     Dates: start: 20210420
  16. RABEPRAZOLE SODIUM. [Concomitant]
     Active Substance: RABEPRAZOLE SODIUM
     Dates: start: 20210430
  17. ENTECAVIR. [Concomitant]
     Active Substance: ENTECAVIR
     Indication: HEPATITIS B
     Dates: start: 20170519
  18. NIFEDIPINE. [Concomitant]
     Active Substance: NIFEDIPINE
     Indication: HYPERTENSION
     Dosage: NIFEDIPINE GITS
     Dates: start: 20191218, end: 20200207
  19. ATEZOLIZUMAB. [Suspect]
     Active Substance: ATEZOLIZUMAB
     Indication: HEPATOCELLULAR CARCINOMA
     Dosage: ADMINISTERED BY IV, 1200 MG ON DAY 1 OF EACH 21 DAY CYCLE?DATE OF MOST RECENT DOSE OF ATEZOLIZUMAB (
     Route: 041
     Dates: start: 20181017
  20. URSODEOXYCHOLIC ACID [Concomitant]
     Active Substance: URSODIOL
     Indication: BLOOD BILIRUBIN INCREASED
     Dates: start: 20190627, end: 20191127
  21. LANSOPRAZOLE. [Concomitant]
     Active Substance: LANSOPRAZOLE
     Dates: start: 20210420, end: 20210429
  22. LEUCOGEN TABLETS [Concomitant]
     Indication: THROMBOCYTOPENIA
     Dates: start: 20200713, end: 20210419
  23. SNAKE VENOM [Concomitant]
     Dosage: HEMAGGLUTINASE INJECTION
     Dates: start: 20210416, end: 20210416

REACTIONS (2)
  - Blood bilirubin increased [Not Recovered/Not Resolved]
  - Proteinuria [Recovering/Resolving]

NARRATIVE: CASE EVENT DATE: 20190826
